FAERS Safety Report 12493338 (Version 1)
Quarter: 2016Q2

REPORT INFORMATION
  Report Type: Spontaneous
  Country: US (occurrence: US)
  Receive Date: 20160623
  Receipt Date: 20160623
  Transmission Date: 20160815
  Serious: Yes (Hospitalization)
  Sender: FDA-Public Use
  Company Number: US-PFIZER INC-2016310096

PATIENT
  Age: 29 Year
  Sex: Male

DRUGS (2)
  1. ALPRAZOLAM. [Suspect]
     Active Substance: ALPRAZOLAM
     Indication: PAIN IN EXTREMITY
     Dosage: CRUSHED THREE TABLETS OF ALPRAZOLAM 0.5 MG, FILTERED IT THROUGH STERILE WATER
     Route: 013
  2. METHADONE [Concomitant]
     Active Substance: METHADONE HYDROCHLORIDE
     Dosage: 49 MG, 1X/DAY

REACTIONS (5)
  - Intentional product misuse [Unknown]
  - Ischaemia [Unknown]
  - Bacteraemia [Unknown]
  - Rhabdomyolysis [Unknown]
  - Embolism [Unknown]
